APPROVED DRUG PRODUCT: HYDROXYZINE PAMOATE
Active Ingredient: HYDROXYZINE PAMOATE
Strength: EQ 25MG HYDROCHLORIDE
Dosage Form/Route: CAPSULE;ORAL
Application: A087761 | Product #001
Applicant: IVAX PHARMACEUTICALS INC SUB TEVA PHARMACEUTICALS USA
Approved: Mar 5, 1982 | RLD: No | RS: No | Type: DISCN